FAERS Safety Report 11279972 (Version 1)
Quarter: 2015Q3

REPORT INFORMATION
  Report Type: Other
  Country: DE (occurrence: DE)
  Receive Date: 20150717
  Receipt Date: 20150717
  Transmission Date: 20151125
  Serious: Yes (Other)
  Sender: FDA-Public Use
  Company Number: DE-MYLANLABS-2015M1022943

PATIENT

DRUGS (3)
  1. METFORMIN [Suspect]
     Active Substance: METFORMIN HYDROCHLORIDE
     Indication: POLYCYSTIC OVARIES
     Dosage: UNK
     Route: 048
     Dates: start: 20150329, end: 20150504
  2. L-THYROXIN 75 [Concomitant]
     Active Substance: LEVOTHYROXINE
     Indication: AUTOIMMUNE THYROIDITIS
     Dosage: 75 ?G, QD (75 [?G/D ])
     Route: 048
     Dates: start: 20150329, end: 20150601
  3. FOLS?URE [Concomitant]
     Indication: PROPHYLAXIS OF NEURAL TUBE DEFECT
     Dosage: UNK
     Route: 048
     Dates: start: 20150329, end: 20150601

REACTIONS (2)
  - Exposure during pregnancy [Unknown]
  - Abortion missed [Recovered/Resolved]
